FAERS Safety Report 5393055-1 (Version None)
Quarter: 2007Q3

REPORT INFORMATION
  Report Type: 
  Country: None (occurrence: None)
  Receive Date: 20070719
  Receipt Date: 20070709
  Transmission Date: 20080115
  Serious: Yes (Hospitalization)
  Sender: FDA-Public Use
  Company Number: 2007-03226

PATIENT
  Age: 50 Year
  Sex: Female

DRUGS (1)
  1. NORINYL 1+35 28-DAY [Suspect]
     Indication: ORAL CONTRACEPTION
     Dosage: 10 YEARS, ORAL
     Route: 048

REACTIONS (2)
  - ACUTE MYOCARDIAL INFARCTION [None]
  - CORONARY ARTERY DISSECTION [None]
